FAERS Safety Report 5537725-0 (Version None)
Quarter: 2007Q4

REPORT INFORMATION
  Report Type: 
  Country: None (occurrence: None)
  Receive Date: 20071207
  Receipt Date: 20071127
  Transmission Date: 20080405
  Serious: Yes (Other)
  Sender: FDA-Public Use
  Company Number: US-SANOFI-SYNTHELABO-A03200706699

PATIENT
  Age: 78 Year
  Sex: Female

DRUGS (7)
  1. ACTONEL [Concomitant]
     Indication: DRUG USE FOR UNKNOWN INDICATION
     Dosage: UNK
     Route: 065
  2. ALTACE [Concomitant]
     Indication: DRUG USE FOR UNKNOWN INDICATION
     Dosage: UNK
     Route: 065
  3. KLONOPIN [Concomitant]
     Indication: DRUG USE FOR UNKNOWN INDICATION
     Dosage: UNK
     Route: 065
  4. PLAVIX [Concomitant]
     Indication: DRUG USE FOR UNKNOWN INDICATION
     Dosage: UNK
     Route: 048
  5. AMBIEN CR [Suspect]
     Indication: INSOMNIA
     Route: 048
     Dates: start: 20071001
  6. AMBIEN CR [Suspect]
     Route: 048
  7. AMBIEN CR [Suspect]
     Route: 048
     Dates: start: 20050101

REACTIONS (7)
  - AMNESIA [None]
  - CONFUSIONAL STATE [None]
  - FEELING DRUNK [None]
  - GAIT DISTURBANCE [None]
  - HYDROCEPHALUS [None]
  - THERAPEUTIC RESPONSE UNEXPECTED [None]
  - URINARY INCONTINENCE [None]
